FAERS Safety Report 8996878 (Version 1)
Quarter: 2012Q4

REPORT INFORMATION
  Report Type: Spontaneous
  Country: GB (occurrence: None)
  Receive Date: 20121221
  Receipt Date: 20121221
  Transmission Date: 20130627
  Serious: Yes (Hospitalization)
  Sender: FDA-Public Use
  Company Number: ACET20120043

PATIENT
  Age: 33 Year
  Sex: Male

DRUGS (1)
  1. Q-PAP TABLETS 325MG (PARACETAMOL) (TABLETS) [Suspect]
     Route: 048

REACTIONS (8)
  - Acute hepatic failure [None]
  - Overdose [None]
  - Liver transplant [None]
  - Aspergillosis [None]
  - Chorioretinitis [None]
  - Haemoptysis [None]
  - Vascular pseudoaneurysm [None]
  - Endophthalmitis [None]
